FAERS Safety Report 18380549 (Version 1)
Quarter: 2020Q4

REPORT INFORMATION
  Report Type: Spontaneous
  Country: DE (occurrence: DE)
  Receive Date: 20201014
  Receipt Date: 20201014
  Transmission Date: 20210114
  Serious: Yes (Other)
  Sender: FDA-Public Use
  Company Number: DE-ASTRAZENECA-2020SF31183

PATIENT
  Sex: Female

DRUGS (2)
  1. LYNPARZA [Suspect]
     Active Substance: OLAPARIB
     Indication: BREAST CANCER
     Route: 048
  2. LYNPARZA [Suspect]
     Active Substance: OLAPARIB
     Indication: BRCA1 GENE MUTATION
     Route: 048

REACTIONS (4)
  - Increased tendency to bruise [Unknown]
  - Asthenia [Unknown]
  - Hypoaesthesia [Unknown]
  - Hypokinesia [Unknown]
